FAERS Safety Report 7318713-0 (Version None)
Quarter: 2011Q1

REPORT INFORMATION
  Report Type: 
  Country: None (occurrence: None)
  Receive Date: 20110228
  Receipt Date: 20100114
  Transmission Date: 20110831
  Serious: No
  Sender: FDA-Public Use
  Company Number: A0807705A

PATIENT
  Age: 59 Year
  Sex: Male
  Weight: 100 kg

DRUGS (5)
  1. ASPIRIN [Concomitant]
  2. NORTRIPTYLINE [Concomitant]
  3. SUMATRIPTAN SUCCINATE [Suspect]
     Indication: HEADACHE
     Dosage: .6MG TWO TIMES PER WEEK
     Route: 030
     Dates: start: 20090101
  4. IMITREX [Suspect]
     Indication: HEADACHE
     Dosage: .6MG AS REQUIRED
     Route: 030
  5. INDERAL [Concomitant]

REACTIONS (2)
  - MUSCULAR WEAKNESS [None]
  - PRODUCT QUALITY ISSUE [None]
